FAERS Safety Report 7102664-0 (Version None)
Quarter: 2010Q4

REPORT INFORMATION
  Report Type: 
  Country: None (occurrence: None)
  Receive Date: 20101115
  Receipt Date: 20101104
  Transmission Date: 20110411
  Serious: Yes (Other)
  Sender: FDA-Public Use
  Company Number: JP-ASTRAZENECA-2010SE52371

PATIENT
  Age: 77 Year
  Sex: Male

DRUGS (4)
  1. BLOPRESS [Suspect]
     Indication: HYPERTENSION
     Route: 048
     Dates: start: 20100611
  2. CRESTOR [Concomitant]
     Route: 048
  3. SUNRYTHM [Concomitant]
     Route: 048
  4. POSTERISAN FORTE [Concomitant]
     Route: 061

REACTIONS (3)
  - HAEMOGLOBIN DECREASED [None]
  - HAEMORRHOIDAL HAEMORRHAGE [None]
  - RED BLOOD CELL COUNT DECREASED [None]
